FAERS Safety Report 9879037 (Version 1)
Quarter: 2014Q1

REPORT INFORMATION
  Report Type: Spontaneous
  Country: US (occurrence: US)
  Receive Date: 20140206
  Receipt Date: 20140206
  Transmission Date: 20141002
  Serious: No
  Sender: FDA-Public Use
  Company Number: US-ALLERGAN-1313460US

PATIENT
  Age: 38 Year
  Sex: Female

DRUGS (1)
  1. BOTOX COSMETIC [Suspect]
     Indication: SKIN WRINKLING
     Dosage: UNK
     Dates: start: 20130828, end: 20130828

REACTIONS (13)
  - Pain in extremity [Recovering/Resolving]
  - Pain [Recovering/Resolving]
  - Dyspepsia [Recovering/Resolving]
  - Ear discomfort [Recovering/Resolving]
  - Fatigue [Recovered/Resolved]
  - Asthenia [Recovered/Resolved]
  - Dysuria [Unknown]
  - Dyschezia [Unknown]
  - Confusional state [Unknown]
  - Nausea [Recovering/Resolving]
  - Fatigue [Recovering/Resolving]
  - Headache [Not Recovered/Not Resolved]
  - Dysphagia [Recovering/Resolving]
